FAERS Safety Report 7865146-4 (Version None)
Quarter: 2011Q4

REPORT INFORMATION
  Report Type: 
  Country: None (occurrence: None)
  Receive Date: 20111028
  Receipt Date: 20101021
  Transmission Date: 20120403
  Serious: No
  Sender: FDA-Public Use
  Company Number: US-GLAXOSMITHKLINE-A0888043A

PATIENT
  Age: 50 Year
  Sex: Female

DRUGS (2)
  1. ZANTAC [Concomitant]
  2. ADVAIR DISKUS 100/50 [Suspect]
     Indication: PULMONARY CONGESTION
     Dosage: 1PUFF AS REQUIRED
     Route: 055
     Dates: start: 20100701, end: 20101021

REACTIONS (1)
  - DRUG SCREEN POSITIVE [None]
